FAERS Safety Report 23257231 (Version 1)
Quarter: 2023Q4

REPORT INFORMATION
  Report Type: Spontaneous
  Country: US (occurrence: US)
  Receive Date: 20231204
  Receipt Date: 20231204
  Transmission Date: 20240109
  Serious: Yes (Other)
  Sender: FDA-Public Use
  Company Number: US-STRIDES ARCOLAB LIMITED-2023SP017923

PATIENT
  Age: 93 Year
  Sex: Female

DRUGS (2)
  1. MEGESTROL ACETATE [Suspect]
     Active Substance: MEGESTROL ACETATE
     Indication: Cachexia
     Dosage: 200 MILLIGRAM PER DAY
     Route: 065
  2. MEGESTROL ACETATE [Suspect]
     Active Substance: MEGESTROL ACETATE
     Dosage: UNK (RECEIVED MULTIPLE EXTRA DOSES OF MEGESTROL PER DAY (HIGHER THAN PRESCRIBED DOSES))
     Route: 065

REACTIONS (3)
  - Intentional product misuse [Unknown]
  - Secondary adrenocortical insufficiency [Recovered/Resolved]
  - Off label use [Unknown]
